FAERS Safety Report 7144652-4 (Version None)
Quarter: 2010Q4

REPORT INFORMATION
  Report Type: 
  Country: None (occurrence: None)
  Receive Date: 20101208
  Receipt Date: 20101021
  Transmission Date: 20110411
  Serious: No
  Sender: FDA-Public Use
  Company Number: US-BAYER-201022818BCC

PATIENT
  Sex: Female
  Weight: 86 kg

DRUGS (1)
  1. ALEVE (CAPLET) [Suspect]
     Indication: TOOTHACHE

REACTIONS (1)
  - THROAT IRRITATION [None]
